FAERS Safety Report 5282346-0 (Version None)
Quarter: 2007Q1

REPORT INFORMATION
  Report Type: 
  Country: None (occurrence: None)
  Receive Date: 20070326
  Receipt Date: 20070314
  Transmission Date: 20070707
  Serious: Yes (Other)
  Sender: FDA-Public Use
  Company Number: 2007RR-06356

PATIENT
  Age: 61 Year
  Sex: Female
  Weight: 122 kg

DRUGS (16)
  1. FRUSEMIDE (FUROSEMIDE) UNKNOWN [Suspect]
  2. PIOGLITAZONE HYDROCHLORIDE (PIOGLITAZONE) UNKNOWN [Suspect]
     Indication: DIABETES MELLITUS
     Dosage: 30 MG, ORAL
     Route: 048
     Dates: start: 20060707, end: 20070102
  3. ACARBOSE [Concomitant]
  4. DIHYDROCODEINE COMPOUND [Concomitant]
  5. DOXAZOSIN (DOXAZOSIN) [Concomitant]
  6. ENALAPRIL MALEATE (ENALAPRIL) [Concomitant]
  7. FOLIC ACID [Concomitant]
  8. GLICLAZIDE (GLICLAZIDE) [Concomitant]
  9. LACIDIPINE [Concomitant]
  10. METFORMIN HYDROCHLORIDE (METFORMIN) [Concomitant]
  11. METHOTREXATE [Concomitant]
  12. METHYLDOPA [Concomitant]
  13. RELIFEX [Concomitant]
  14. SIMVASTATIN [Concomitant]
  15. SULFASALAZINE [Concomitant]
  16. TIMOLOL MALEATE [Concomitant]

REACTIONS (3)
  - CARDIAC FAILURE CONGESTIVE [None]
  - CARDIOMEGALY [None]
  - JOINT SWELLING [None]
